FAERS Safety Report 6203381-1 (Version None)
Quarter: 2009Q2

REPORT INFORMATION
  Report Type: 
  Country: None (occurrence: None)
  Receive Date: 20090527
  Receipt Date: 20090519
  Transmission Date: 20091009
  Serious: Yes (Death)
  Sender: FDA-Public Use
  Company Number: AU-AVENTIS-200915231GDDC

PATIENT
  Age: 64 Year
  Sex: Female

DRUGS (4)
  1. ARAVA [Suspect]
     Dates: start: 20040511
  2. METHOTREXATE [Concomitant]
     Dosage: DOSE: UNK
  3. PREDNISONE [Concomitant]
     Dosage: DOSE: UNK
  4. UNKNOWN DRUG [Concomitant]

REACTIONS (1)
  - HEPATIC CANCER METASTATIC [None]
